FAERS Safety Report 11536134 (Version 2)
Quarter: 2015Q4

REPORT INFORMATION
  Report Type: Spontaneous
  Country: US (occurrence: US)
  Receive Date: 20150922
  Receipt Date: 20151027
  Transmission Date: 20160304
  Serious: Yes (Hospitalization, Other)
  Sender: FDA-Public Use
  Company Number: US-AMGEN-USASP2015096191

PATIENT
  Age: 71 Year
  Sex: Female

DRUGS (1)
  1. ENBREL [Suspect]
     Active Substance: ETANERCEPT
     Indication: RHEUMATOID ARTHRITIS
     Dosage: 50 MG, QWK
     Route: 065
     Dates: start: 2007

REACTIONS (6)
  - Chronic obstructive pulmonary disease [Unknown]
  - Injection site pain [Unknown]
  - Interstitial lung disease [Unknown]
  - Device malfunction [Unknown]
  - Lung disorder [Unknown]
  - Underdose [Unknown]

NARRATIVE: CASE EVENT DATE: 20150916
